FAERS Safety Report 20290551 (Version 1)
Quarter: 2022Q1

REPORT INFORMATION
  Report Type: Spontaneous
  Country: US (occurrence: US)
  Receive Date: 20220104
  Receipt Date: 20220104
  Transmission Date: 20220424
  Serious: Yes (Hospitalization)
  Sender: FDA-Public Use
  Company Number: US-SA-SAC20211231000670

PATIENT
  Sex: Male

DRUGS (9)
  1. DUPIXENT [Suspect]
     Active Substance: DUPILUMAB
     Indication: Psoriasis
     Dosage: 300 MG, QOW
     Route: 058
  2. OTEZLA [Concomitant]
     Active Substance: APREMILAST
  3. TRIAMCINOLONE [Concomitant]
     Active Substance: TRIAMCINOLONE
  4. EUCERIN [UREA] [Concomitant]
  5. TACROLIMUS [Concomitant]
     Active Substance: TACROLIMUS
  6. ZINC GLUCONATE [Concomitant]
     Active Substance: ZINC GLUCONATE
  7. METFORMIN HYDROCHLORIDE [Concomitant]
     Active Substance: METFORMIN HYDROCHLORIDE
  8. TESTOSTERONE [Concomitant]
     Active Substance: TESTOSTERONE
  9. VITAMIN D3 [Concomitant]
     Active Substance: CHOLECALCIFEROL

REACTIONS (3)
  - Post procedural infection [Unknown]
  - Ankle fracture [Unknown]
  - Product use in unapproved indication [Unknown]
